FAERS Safety Report 9350261 (Version 2)
Quarter: 2014Q1

REPORT INFORMATION
  Report Type: Report from Study
  Country: US (occurrence: US)
  Receive Date: 20130617
  Receipt Date: 20140320
  Transmission Date: 20141002
  Serious: Yes (Hospitalization)
  Sender: FDA-Public Use
  Company Number: US-ROCHE-1087068

PATIENT
  Age: 44 Year
  Sex: Male
  Weight: 122 kg

DRUGS (4)
  1. PEG-INTERFERON ALFA 2A [Suspect]
     Indication: CHRONIC HEPATITIS C
     Dosage: ON 11/JUN/2012, MOST RECENT DOSE PRIOR TO SAE WAS 90 MCG
     Route: 065
     Dates: start: 20120310
  2. RIBAVIRIN [Suspect]
     Indication: CHRONIC HEPATITIS C
     Dosage: ON 07/JUN/2012, MOST RECENT DOSE PRIOR TO SAE WAS 400 MG
     Route: 065
     Dates: start: 20120310
  3. RIBAVIRIN [Suspect]
     Route: 065
     Dates: start: 20120411
  4. BOCEPREVIR [Suspect]
     Indication: CHRONIC HEPATITIS C
     Dosage: ON 07/JUN/2012, MOST RECENT DOSE PRIOR TO SAE WAS 2400 MG
     Route: 065
     Dates: start: 20120407

REACTIONS (3)
  - Pancytopenia [Not Recovered/Not Resolved]
  - Skin ulcer [Not Recovered/Not Resolved]
  - Hepatic encephalopathy [Recovered/Resolved]
